FAERS Safety Report 8991023 (Version 2)
Quarter: 2013Q2

REPORT INFORMATION
  Report Type: Report from Study
  Country: JP (occurrence: JP)
  Receive Date: 20121231
  Receipt Date: 20130530
  Transmission Date: 20140414
  Serious: Yes (Other)
  Sender: FDA-Public Use
  Company Number: JP-009507513-2011SP046094

PATIENT
  Age: 62 Year
  Sex: Female
  Weight: 56 kg

DRUGS (7)
  1. REBETOL [Suspect]
     Indication: CHRONIC HEPATITIS C
     Dosage: 600 MG(200 MG IN EVENING AND 400 MG IN MORNING), QD
     Route: 048
     Dates: start: 20101005, end: 20120218
  2. FERON [Suspect]
     Indication: CHRONIC HEPATITIS C
     Dosage: 6 MILLION IU, UNK
     Route: 042
     Dates: start: 20101005, end: 20101219
  3. FERON [Suspect]
     Dosage: 6 MILLION IU, ONCE A DAY, THREE DAYS IN A WEEK
     Route: 042
     Dates: start: 20101221, end: 20120218
  4. MYSLEE [Concomitant]
     Indication: INSOMNIA
     Dosage: 5 MG, UNK
     Route: 048
     Dates: start: 20091027, end: 20120421
  5. PURSENNID (SENNOSIDES) [Concomitant]
     Indication: CONSTIPATION
     Dosage: 24 MG, UNK
     Route: 048
     Dates: start: 20090921
  6. JUZEN-TAIHO-TO [Concomitant]
     Indication: PROPHYLAXIS
     Dosage: 7.5 G, DIVIDED DOSE FREQUENCY U
     Route: 048
     Dates: end: 20120220
  7. LOXONIN [Concomitant]
     Indication: PYREXIA
     Dosage: 60 MG, DIVIDED DOSE FREQUENCY U
     Route: 048
     Dates: end: 20120220

REACTIONS (8)
  - White blood cell count decreased [Recovering/Resolving]
  - Pyrexia [Recovering/Resolving]
  - Decreased appetite [Recovered/Resolved]
  - Palpitations [Recovered/Resolved]
  - Oropharyngeal pain [Recovered/Resolved]
  - Cough [Recovered/Resolved]
  - Thirst [Recovered/Resolved]
  - Pruritus [Recovered/Resolved]
